FAERS Safety Report 25259156 (Version 2)
Quarter: 2025Q2

REPORT INFORMATION
  Report Type: Spontaneous
  Country: ES (occurrence: ES)
  Receive Date: 20250501
  Receipt Date: 20250506
  Transmission Date: 20250716
  Serious: Yes (Other)
  Sender: ACCORD
  Company Number: ES-Accord-481936

PATIENT
  Age: 73 Year
  Sex: Female

DRUGS (1)
  1. MITOMYCIN [Suspect]
     Active Substance: MITOMYCIN
     Indication: Product used for unknown indication

REACTIONS (2)
  - Blebitis [Recovered/Resolved]
  - Staphylococcal infection [Recovered/Resolved]
